FAERS Safety Report 25665521 (Version 1)
Quarter: 2025Q3

REPORT INFORMATION
  Report Type: Report from Study
  Country: US (occurrence: US)
  Receive Date: 20250811
  Receipt Date: 20250811
  Transmission Date: 20251021
  Serious: Yes (Other)
  Sender: BAYER HEALTHCARE PHARMACEUTICALS INC.
  Company Number: US-BAYER-2025A081937

PATIENT
  Age: 62 Year
  Sex: Male

DRUGS (1)
  1. NUBEQA [Suspect]
     Active Substance: DAROLUTAMIDE
     Indication: Prostate cancer
     Dosage: 600 MG, BID
     Route: 048

REACTIONS (5)
  - Blood glucose increased [None]
  - Loss of consciousness [None]
  - Brain fog [Unknown]
  - Night sweats [Unknown]
  - Fatigue [Unknown]
